FAERS Safety Report 9773337 (Version 1)
Quarter: 2013Q4

REPORT INFORMATION
  Report Type: Spontaneous
  Country: US (occurrence: US)
  Receive Date: 20131219
  Receipt Date: 20131219
  Transmission Date: 20140711
  Serious: Yes (Other)
  Sender: FDA-Public Use
  Company Number: US-PFIZER INC-2013364271

PATIENT
  Age: 6 Year
  Sex: Male

DRUGS (3)
  1. QUILLIVANT XR [Suspect]
     Indication: ATTENTION DEFICIT/HYPERACTIVITY DISORDER
     Dosage: 1 ML, 1X/DAY
     Route: 048
     Dates: start: 201311, end: 201311
  2. QUILLIVANT XR [Suspect]
     Dosage: 2 ML, 1X/DAY
     Route: 048
     Dates: start: 201311, end: 2013
  3. QUILLIVANT XR [Suspect]
     Dosage: 1 ML, 1X/DAY
     Route: 048
     Dates: start: 2013, end: 2013

REACTIONS (2)
  - Anger [Unknown]
  - Aggression [Unknown]
